FAERS Safety Report 5132800-7 (Version None)
Quarter: 2006Q4

REPORT INFORMATION
  Report Type: 
  Country: None (occurrence: None)
  Receive Date: 20061017
  Receipt Date: 20061005
  Transmission Date: 20070319
  Serious: Yes (Life-Threatening, Hospitalization)
  Sender: FDA-Public Use
  Company Number: S06-AUS-02631-01

PATIENT
  Age: 27 Year
  Sex: Female

DRUGS (2)
  1. CERVIDIL [Suspect]
     Indication: LABOUR INDUCTION
     Dosage: 10 MG ONCE VG
     Route: 067
     Dates: start: 20060326, end: 20060326
  2. RANITIDINE [Concomitant]

REACTIONS (10)
  - ABNORMAL LABOUR AFFECTING FOETUS [None]
  - BACK PAIN [None]
  - CAESAREAN SECTION [None]
  - DIZZINESS [None]
  - DRUG EXPOSURE DURING PREGNANCY [None]
  - HYPERSENSITIVITY [None]
  - HYPOTENSION [None]
  - MALAISE [None]
  - NAUSEA [None]
  - SHOCK [None]
